FAERS Safety Report 6473536-X (Version None)
Quarter: 2009Q4

REPORT INFORMATION
  Report Type: 
  Country: None (occurrence: None)
  Receive Date: 20091204
  Receipt Date: 20081104
  Transmission Date: 20100525
  Serious: Yes (Other)
  Sender: FDA-Public Use
  Company Number: US-ELI_LILLY_AND_COMPANY-US200811001305

PATIENT
  Age: 59 Year
  Sex: Male

DRUGS (6)
  1. CIALIS [Suspect]
     Indication: ERECTILE DYSFUNCTION
     Dosage: UNK, AS NEEDED
     Route: 065
     Dates: start: 20041201
  2. TRICOR [Concomitant]
     Dosage: 200 MG, EACH EVENING
     Route: 065
  3. LOVAZA [Concomitant]
     Dosage: 1000 MG, 3/D
     Route: 065
  4. ZOCOR [Concomitant]
     Dosage: 80 MG, EACH EVENING
     Route: 065
  5. ZETIA [Concomitant]
     Dosage: 10 MG, DAILY (1/D)
     Route: 065
  6. ASPIRIN [Concomitant]
     Dosage: UNK, DAILY (1/D)
     Route: 065

REACTIONS (2)
  - OPTIC ISCHAEMIC NEUROPATHY [None]
  - UPPER RESPIRATORY TRACT INFECTION [None]
